FAERS Safety Report 15015049 (Version 1)
Quarter: 2018Q2

REPORT INFORMATION
  Report Type: Spontaneous
  Country: US (occurrence: US)
  Receive Date: 20180530
  Receipt Date: 20180530
  Transmission Date: 20180711
  Serious: Yes (Death, Life-Threatening, Hospitalization)
  Sender: FDA-Public Use
  Company Number: None

PATIENT
  Age: 70 Year

DRUGS (3)
  1. DEXAMETHASONE. [Suspect]
     Active Substance: DEXAMETHASONE
  2. DARATUMUMAB [Suspect]
     Active Substance: DARATUMUMAB
  3. POMALIDOMIDE [Suspect]
     Active Substance: POMALIDOMIDE

REACTIONS (4)
  - Neutropenia [None]
  - Pancytopenia [None]
  - Pneumonia [None]
  - Liver function test increased [None]

NARRATIVE: CASE EVENT DATE: 20170427
